FAERS Safety Report 7736677-2 (Version None)
Quarter: 2011Q3

REPORT INFORMATION
  Report Type: 
  Country: None (occurrence: None)
  Receive Date: 20110908
  Receipt Date: 20110905
  Transmission Date: 20111222
  Serious: Yes (Other)
  Sender: FDA-Public Use
  Company Number: JP-PFIZER INC-2011207408

PATIENT
  Age: 81 Year
  Sex: Female

DRUGS (4)
  1. LYRICA [Suspect]
     Dosage: 225 MG/DAY
     Route: 048
     Dates: start: 20110413, end: 20110502
  2. LYRICA [Suspect]
     Dosage: 150 MG/DAY
     Dates: start: 20110503, end: 20110617
  3. LYRICA [Suspect]
     Indication: NEURALGIA
     Dosage: 150 MG/DAY
     Route: 048
     Dates: start: 20110201, end: 20110412
  4. PROPIVERINE HYDROCHLORIDE [Concomitant]
     Dosage: UNK
     Dates: start: 20110420

REACTIONS (2)
  - DEMENTIA [None]
  - SPEECH DISORDER [None]
